FAERS Safety Report 4828176-2 (Version None)
Quarter: 2005Q4

REPORT INFORMATION
  Report Type: 
  Country: None (occurrence: None)
  Receive Date: 20051115
  Receipt Date: 20051107
  Transmission Date: 20060501
  Serious: Yes (Other)
  Sender: FDA-Public Use
  Company Number: US-GLAXOSMITHKLINE-A0581222A

PATIENT
  Age: 57 Year
  Sex: Male

DRUGS (2)
  1. PAXIL [Suspect]
     Indication: DEPRESSION
     Dosage: 40MG PER DAY
     Route: 048
     Dates: start: 20010101
  2. NO CONCURRENT MEDICATION [Concomitant]

REACTIONS (3)
  - ANGER [None]
  - CRYING [None]
  - SELF MUTILATION [None]
